FAERS Safety Report 5386761-6 (Version None)
Quarter: 2007Q3

REPORT INFORMATION
  Report Type: 
  Country: None (occurrence: None)
  Receive Date: 20070713
  Receipt Date: 20070702
  Transmission Date: 20080115
  Serious: Yes (Hospitalization, Other)
  Sender: FDA-Public Use
  Company Number: US-PFIZER INC-2006109621

PATIENT
  Sex: Female
  Weight: 77.1 kg

DRUGS (6)
  1. CELEBREX [Suspect]
     Indication: ARTHRALGIA
  2. VIOXX [Suspect]
     Indication: OSTEOARTHRITIS
     Route: 048
     Dates: start: 20030101, end: 20040101
  3. VIOXX [Suspect]
     Indication: ARTHRITIS
  4. VIOXX [Suspect]
     Indication: ARTHROPATHY
  5. CARISOPRODOL [Concomitant]
     Dates: start: 20000721, end: 20060801
  6. HYDROCODONE BITARTRATE + ACETAMINOPHEN [Concomitant]
     Dates: start: 20000721, end: 20060118

REACTIONS (2)
  - BLINDNESS [None]
  - CEREBROVASCULAR ACCIDENT [None]
